FAERS Safety Report 18138005 (Version 2)
Quarter: 2021Q2

REPORT INFORMATION
  Report Type: Spontaneous
  Country: US (occurrence: US)
  Receive Date: 20200812
  Receipt Date: 20210429
  Transmission Date: 20210717
  Serious: Yes (Other)
  Sender: FDA-Public Use
  Company Number: US-SA-2020SA207949

PATIENT
  Age: 65 Year
  Sex: Female

DRUGS (1)
  1. ZANTAC [Suspect]
     Active Substance: RANITIDINE HYDROCHLORIDE
     Indication: DYSPEPSIA
     Dosage: 150 MG
     Dates: start: 201501, end: 201901

REACTIONS (2)
  - Pancreatic carcinoma stage I [Recovering/Resolving]
  - Malignant neoplasm of ampulla of Vater [Unknown]

NARRATIVE: CASE EVENT DATE: 201908
